FAERS Safety Report 6197325-9 (Version None)
Quarter: 2009Q2

REPORT INFORMATION
  Report Type: 
  Country: None (occurrence: None)
  Receive Date: 20090518
  Receipt Date: 20090505
  Transmission Date: 20091009
  Serious: Yes (Disabling)
  Sender: FDA-Public Use
  Company Number: 2009AP001830

PATIENT
  Age: 63 Year
  Sex: Female

DRUGS (3)
  1. OMEPRAZOLE [Suspect]
     Dosage: 20 MG; QD PO
     Route: 048
     Dates: start: 20090126, end: 20090220
  2. CARBAMAZEPINE [Suspect]
     Indication: FACIAL NEURALGIA
     Dosage: 100 MG; BID PO
     Route: 048
     Dates: start: 20090126, end: 20090220
  3. DICLOFENAC (DICLOFENAC) [Suspect]
     Indication: FACIAL NEURALGIA
     Dosage: 50 MG; TID PO
     Route: 048
     Dates: start: 20090126, end: 20090220

REACTIONS (6)
  - ALANINE AMINOTRANSFERASE INCREASED [None]
  - BLOOD ALKALINE PHOSPHATASE INCREASED [None]
  - CHILLS [None]
  - GAMMA-GLUTAMYLTRANSFERASE INCREASED [None]
  - LIVER DISORDER [None]
  - MALAISE [None]
